FAERS Safety Report 9406597 (Version 2)
Quarter: 2013Q3

REPORT INFORMATION
  Report Type: Report from Study
  Country: CA (occurrence: CA)
  Receive Date: 20130718
  Receipt Date: 20130722
  Transmission Date: 20140515
  Serious: Yes (Hospitalization, Other)
  Sender: FDA-Public Use
  Company Number: CA-JNJFOC-20130705196

PATIENT
  Age: 11 Year
  Sex: Female

DRUGS (1)
  1. REMICADE [Suspect]
     Indication: UVEITIS
     Route: 042
     Dates: start: 20130619

REACTIONS (8)
  - Infection parasitic [Unknown]
  - Abnormal faeces [Unknown]
  - Vomiting [Unknown]
  - Pyrexia [Unknown]
  - Off label use [Unknown]
  - Influenza like illness [Unknown]
  - Fatigue [Unknown]
  - Nausea [Unknown]
